FAERS Safety Report 5644219-0 (Version None)
Quarter: 2008Q1

REPORT INFORMATION
  Report Type: 
  Country: None (occurrence: None)
  Receive Date: 20080227
  Receipt Date: 20080227
  Transmission Date: 20080703
  Serious: No
  Sender: FDA-Public Use
  Company Number: None

PATIENT
  Age: 74 Year
  Sex: Male
  Weight: 78.4723 kg

DRUGS (6)
  1. PROPRANOLOL ER 80MG CAPS [Suspect]
     Indication: MITRAL VALVE PROLAPSE
     Dosage: SEE IMAGE
     Route: 048
  2. PROPRANOLOL ER 80MG CAPS [Suspect]
     Indication: MITRAL VALVE PROLAPSE
     Dosage: SEE IMAGE
     Route: 048
     Dates: start: 20000119
  3. CRESTOR [Concomitant]
  4. NORVASC [Concomitant]
  5. PROSCAR [Concomitant]
  6. PRILOSEC [Concomitant]

REACTIONS (3)
  - PALPITATIONS [None]
  - PHARMACEUTICAL PRODUCT COMPLAINT [None]
  - THERAPEUTIC RESPONSE UNEXPECTED WITH DRUG SUBSTITUTION [None]
